FAERS Safety Report 5286513-1 (Version None)
Quarter: 2007Q1

REPORT INFORMATION
  Report Type: 
  Country: None (occurrence: None)
  Receive Date: 20070116
  Receipt Date: 20061102
  Transmission Date: 20070707
  Serious: No
  Sender: FDA-Public Use
  Company Number: 2006SP003895

PATIENT
  Age: 48 Year
  Sex: Female
  Weight: 70.3075 kg

DRUGS (6)
  1. LUNESTA [Suspect]
     Indication: INSOMNIA
     Dosage: 2 MG;HS;ORAL
     Route: 048
     Dates: start: 20061101, end: 20061101
  2. CLINORIL [Concomitant]
  3. DIAZEPAM [Concomitant]
  4. PROPACET 100 [Concomitant]
  5. ESTROGEN NOS [Concomitant]
  6. ADVAIR DISKUS 100/50 [Concomitant]

REACTIONS (1)
  - INITIAL INSOMNIA [None]
